FAERS Safety Report 6570965-0 (Version None)
Quarter: 2010Q1

REPORT INFORMATION
  Report Type: 
  Country: None (occurrence: None)
  Receive Date: 20100203
  Receipt Date: 20100203
  Transmission Date: 20100710
  Serious: Yes (Life-Threatening)
  Sender: FDA-Public Use
  Company Number: None

PATIENT
  Age: 38 Year
  Sex: Female
  Weight: 82.1011 kg

DRUGS (1)
  1. KARIVA [Suspect]
     Indication: MENORRHAGIA
     Dosage: 1 PILL DAILY PO
     Route: 048
     Dates: start: 20090930, end: 20100124

REACTIONS (4)
  - ABASIA [None]
  - ANXIETY [None]
  - DEEP VEIN THROMBOSIS [None]
  - PRODUCT QUALITY ISSUE [None]
